FAERS Safety Report 6554713-6 (Version None)
Quarter: 2010Q1

REPORT INFORMATION
  Report Type: 
  Country: None (occurrence: None)
  Receive Date: 20100127
  Receipt Date: 20100119
  Transmission Date: 20100710
  Serious: Yes (Hospitalization, Other)
  Sender: FDA-Public Use
  Company Number: US-JNJFOC-20091007884

PATIENT
  Sex: Male
  Weight: 81.65 kg

DRUGS (7)
  1. DURAGESIC-100 [Suspect]
     Indication: BACK PAIN
     Route: 062
     Dates: start: 20020101, end: 20091022
  2. DURAGESIC-100 [Suspect]
     Route: 062
     Dates: start: 20020101, end: 20091022
  3. OXYCODONE [Concomitant]
     Indication: PAIN
     Route: 048
  4. NEURONTIN [Concomitant]
     Indication: PAIN
     Route: 048
  5. NORTRIPTYLINE [Concomitant]
     Indication: PAIN
     Route: 048
  6. FOLIC ACID [Concomitant]
     Route: 048
  7. CITALOPRAM [Concomitant]
     Route: 048

REACTIONS (4)
  - BACK PAIN [None]
  - DYSPHEMIA [None]
  - HYPERTENSION [None]
  - TREMOR [None]
